FAERS Safety Report 17461445 (Version 1)
Quarter: 2020Q1

REPORT INFORMATION
  Report Type: Spontaneous
  Country: FR (occurrence: FR)
  Receive Date: 20200226
  Receipt Date: 20200226
  Transmission Date: 20200409
  Serious: Yes (Hospitalization)
  Sender: FDA-Public Use
  Company Number: FR-009507513-2002FRA006367

PATIENT
  Age: 31 Year
  Sex: Female

DRUGS (10)
  1. PREDNISONE. [Suspect]
     Active Substance: PREDNISONE
     Indication: ACUTE GENERALISED EXANTHEMATOUS PUSTULOSIS
     Dosage: 20 MILLIGRAM, QD, DECREASE OF THE DOSAGE ON 13-MAY-2019
     Route: 048
     Dates: start: 20190505
  2. ORBENINE [Concomitant]
     Active Substance: CLOXACILLIN SODIUM
     Dosage: UNK
  3. DIFFU-K [Concomitant]
     Active Substance: POTASSIUM CHLORIDE
     Dosage: UNK
  4. DIPROSONE [Suspect]
     Active Substance: BETAMETHASONE DIPROPIONATE
     Indication: ACUTE GENERALISED EXANTHEMATOUS PUSTULOSIS
     Dosage: 1 DOSAGE FORM, QD
     Route: 048
     Dates: start: 20190514
  5. DOLIPRANE [Suspect]
     Active Substance: ACETAMINOPHEN
     Indication: PAIN
     Dosage: 3 GRAM, 1 DAY, IF NEEDED
     Route: 048
     Dates: start: 20190503
  6. CLARELUX [Suspect]
     Active Substance: CLOBETASOL PROPIONATE
     Indication: ACUTE GENERALISED EXANTHEMATOUS PUSTULOSIS
     Dosage: 1 DOSAGE FORM, 1 DAY, STRENGTH: 500 MICROGRAMS/G
     Route: 048
     Dates: start: 20190509, end: 20190513
  7. STROMECTOL [Suspect]
     Active Substance: IVERMECTIN
     Indication: PROPHYLAXIS
     Dosage: 12 MILLIGRAM (1 TOTAL)
     Route: 048
     Dates: start: 20190505, end: 20190505
  8. DIPROSONE [Suspect]
     Active Substance: BETAMETHASONE DIPROPIONATE
     Indication: ACUTE GENERALISED EXANTHEMATOUS PUSTULOSIS
     Dosage: 1 DOSAGE FORM, QD
     Route: 048
     Dates: start: 20190424, end: 20190502
  9. CETIRIZINE [Suspect]
     Active Substance: CETIRIZINE HYDROCHLORIDE
     Indication: ACUTE GENERALISED EXANTHEMATOUS PUSTULOSIS
     Dosage: 10 MILLIGRAM, 1 DAY, SCORED FILM COATED TABLET
     Route: 048
     Dates: start: 20190505
  10. CLAFORAN [Concomitant]
     Active Substance: CEFOTAXIME SODIUM
     Dosage: UNK

REACTIONS (3)
  - Oligohydramnios [Recovered/Resolved with Sequelae]
  - Foetal growth restriction [Recovered/Resolved with Sequelae]
  - Foetal death [Recovered/Resolved with Sequelae]

NARRATIVE: CASE EVENT DATE: 20190527
